FAERS Safety Report 9311157 (Version 1)
Quarter: 2013Q2

REPORT INFORMATION
  Report Type: Spontaneous
  Country: US (occurrence: US)
  Receive Date: 20130528
  Receipt Date: 20130528
  Transmission Date: 20140414
  Serious: Yes (Other)
  Sender: FDA-Public Use
  Company Number: US-PFIZER INC-2013160252

PATIENT
  Age: 95 Year
  Sex: Female

DRUGS (2)
  1. NEURONTIN [Suspect]
     Dosage: 300 MG, 3X/DAY
  2. NEURONTIN [Suspect]
     Dosage: 200 MG, UNK

REACTIONS (5)
  - Renal impairment [Unknown]
  - Blood creatinine abnormal [Unknown]
  - Drug withdrawal syndrome [Unknown]
  - Malaise [Unknown]
  - Muscle spasms [Unknown]
